FAERS Safety Report 12715656 (Version 1)
Quarter: 2016Q3

REPORT INFORMATION
  Report Type: Spontaneous
  Country: ID (occurrence: ID)
  Receive Date: 20160906
  Receipt Date: 20160906
  Transmission Date: 20161109
  Serious: Yes (Hospitalization)
  Sender: FDA-Public Use
  Company Number: ID-ALVOGEN-2016-ALVOGEN-028125

PATIENT
  Age: 35 Year
  Sex: Male

DRUGS (8)
  1. MESNA. [Suspect]
     Active Substance: MESNA
     Indication: RHABDOMYOSARCOMA
  2. IFOSFAMIDE. [Suspect]
     Active Substance: IFOSFAMIDE
     Indication: METASTASES TO LUNG
  3. IFOSFAMIDE. [Suspect]
     Active Substance: IFOSFAMIDE
     Indication: RHABDOMYOSARCOMA
  4. DACARBAZINE. [Suspect]
     Active Substance: DACARBAZINE
     Indication: RHABDOMYOSARCOMA
  5. DACARBAZINE. [Suspect]
     Active Substance: DACARBAZINE
     Indication: METASTASES TO LUNG
  6. DOXORUBICIN [Suspect]
     Active Substance: DOXORUBICIN
     Indication: RHABDOMYOSARCOMA
  7. DOXORUBICIN [Suspect]
     Active Substance: DOXORUBICIN
     Indication: METASTASES TO LUNG
  8. MESNA. [Suspect]
     Active Substance: MESNA
     Indication: METASTASES TO LUNG

REACTIONS (1)
  - Pneumothorax spontaneous [Recovered/Resolved]
